FAERS Safety Report 7973589-3 (Version None)
Quarter: 2011Q4

REPORT INFORMATION
  Report Type: 
  Country: None (occurrence: None)
  Receive Date: 20111202
  Receipt Date: 20111124
  Transmission Date: 20120403
  Serious: Yes (Other)
  Sender: FDA-Public Use
  Company Number: 2011SP027100

PATIENT
  Age: 86 Year
  Sex: Male

DRUGS (13)
  1. DONEPEZIL HYDROCHLORIDE [Concomitant]
  2. AMANTADINE HCL [Concomitant]
  3. MIRTAZAPINE [Suspect]
     Indication: AGGRESSION
     Dosage: 15 MG; ONCE; PO
     Route: 048
     Dates: start: 20110517, end: 20110517
  4. MIRTAZAPINE [Suspect]
     Indication: AGITATION
     Dosage: 15 MG; ONCE; PO
     Route: 048
     Dates: start: 20110517, end: 20110517
  5. MIRTAZAPINE [Suspect]
     Indication: SOMNOLENCE
     Dosage: 15 MG; ONCE; PO
     Route: 048
     Dates: start: 20110517, end: 20110517
  6. NAFTOPIDIL [Concomitant]
  7. DONEPEZIL HYDROCHLORIDE [Concomitant]
  8. L-CARBOCISTEINE [Concomitant]
  9. IMIDAPRIL HYDROCHLORIDE [Concomitant]
  10. DONEPEZIL HYDROCHLORIDE [Concomitant]
  11. IFENPRODIL TARTRATE [Concomitant]
  12. ATENOLOL [Concomitant]
  13. TIAPRIDE HYDROCHLORIDE [Concomitant]

REACTIONS (5)
  - ALTERED STATE OF CONSCIOUSNESS [None]
  - CRYING [None]
  - HALLUCINATION [None]
  - SPEECH DISORDER [None]
  - DRUG INEFFECTIVE [None]
